FAERS Safety Report 24310985 (Version 1)
Quarter: 2024Q3

REPORT INFORMATION
  Report Type: Spontaneous
  Country: CN (occurrence: CN)
  Receive Date: 20240912
  Receipt Date: 20240912
  Transmission Date: 20241016
  Serious: Yes (Hospitalization, Other)
  Sender: RANBAXY
  Company Number: CN-SUN PHARMACEUTICAL INDUSTRIES LTD-2024R1-467261

PATIENT
  Age: 46 Year
  Sex: Male

DRUGS (5)
  1. METHYLPREDNISOLONE [Suspect]
     Active Substance: METHYLPREDNISOLONE
     Indication: Chronic inflammatory demyelinating polyradiculoneuropathy
     Dosage: UNK (1000MG IVGTT)
     Route: 042
  2. METHYLPREDNISOLONE [Suspect]
     Active Substance: METHYLPREDNISOLONE
     Dosage: UNK (500MG IVGTT)
     Route: 042
  3. PREDNISONE [Suspect]
     Active Substance: PREDNISONE
     Indication: Chronic inflammatory demyelinating polyradiculoneuropathy
     Dosage: 15 MILLIGRAM, QD
     Route: 048
  4. MYCOPHENOLATE MOFETIL [Suspect]
     Active Substance: MYCOPHENOLATE MOFETIL
     Indication: Chronic inflammatory demyelinating polyradiculoneuropathy
     Dosage: 1000 MILLIGRAM, TID
     Route: 065
  5. AZATHIOPRINE [Suspect]
     Active Substance: AZATHIOPRINE
     Indication: Chronic inflammatory demyelinating polyradiculoneuropathy
     Dosage: 50 MILLIGRAM, BID
     Route: 048

REACTIONS (2)
  - Disease recurrence [Unknown]
  - Drug ineffective [Unknown]
